FAERS Safety Report 8014880-4 (Version None)
Quarter: 2011Q4

REPORT INFORMATION
  Report Type: 
  Country: None (occurrence: None)
  Receive Date: 20111229
  Receipt Date: 20111222
  Transmission Date: 20120403
  Serious: No
  Sender: FDA-Public Use
  Company Number: US-PFIZER INC-2011311645

PATIENT

DRUGS (1)
  1. IBUPROFEN [Suspect]
     Dosage: 400 MG, UNK
     Route: 063

REACTIONS (2)
  - EXPOSURE DURING BREAST FEEDING [None]
  - VOMITING PROJECTILE [None]
